FAERS Safety Report 26058290 (Version 1)
Quarter: 2025Q4

REPORT INFORMATION
  Report Type: Spontaneous
  Country: EU (occurrence: EU)
  Receive Date: 20251118
  Receipt Date: 20251118
  Transmission Date: 20260118
  Serious: Yes (Hospitalization, Other)
  Sender: AUROBINDO
  Company Number: EU-AFSSAPS-PO2025001135

PATIENT
  Age: 84 Year
  Sex: Male
  Weight: 73 kg

DRUGS (3)
  1. METRONIDAZOLE [Suspect]
     Active Substance: METRONIDAZOLE
     Indication: Colitis
     Dosage: POSOLOGIE NON COMMUNIQU?E
     Dates: start: 20251010, end: 20251014
  2. METRONIDAZOLE [Suspect]
     Active Substance: METRONIDAZOLE
     Dosage: 500 MILLIGRAM, 3 TIMES A DAY
     Dates: start: 20251014, end: 20251021
  3. OFLOXACIN [Suspect]
     Active Substance: OFLOXACIN
     Indication: Colitis
     Dosage: 200 MILLIGRAM
     Dates: start: 20251014, end: 20251021

REACTIONS (5)
  - Hallucination [Unknown]
  - Suicidal ideation [Unknown]
  - Anxiety [Unknown]
  - Crying [Unknown]
  - Sleep disorder [Unknown]

NARRATIVE: CASE EVENT DATE: 20251018
